FAERS Safety Report 20896736 (Version 1)
Quarter: 2022Q2

REPORT INFORMATION
  Report Type: Spontaneous
  Country: US (occurrence: None)
  Receive Date: 20220530
  Receipt Date: 20220530
  Transmission Date: 20220721
  Serious: Yes (Disabling)
  Sender: FDA-Public Use
  Company Number: None

PATIENT
  Age: 72 Year
  Sex: Male
  Weight: 87.75 kg

DRUGS (4)
  1. JANUVIA [Suspect]
     Active Substance: SITAGLIPTIN PHOSPHATE
     Indication: Blood glucose increased
     Dosage: OTHER QUANTITY : 1 TABLET(S);?FREQUENCY : DAILY;?
     Route: 048
     Dates: start: 20220428, end: 20220503
  2. AMLODIPINE BESYLATE [Concomitant]
     Active Substance: AMLODIPINE BESYLATE
  3. METOPROLOL [Concomitant]
     Active Substance: METOPROLOL
  4. METOPROLOL [Concomitant]
     Active Substance: METOPROLOL

REACTIONS (3)
  - Epistaxis [None]
  - Flushing [None]
  - Vertigo [None]

NARRATIVE: CASE EVENT DATE: 20220501
